FAERS Safety Report 5993502-8 (Version None)
Quarter: 2008Q4

REPORT INFORMATION
  Report Type: 
  Country: None (occurrence: None)
  Receive Date: 20081212
  Receipt Date: 20081202
  Transmission Date: 20090506
  Serious: Yes (Death, Life-Threatening, Hospitalization, Other)
  Sender: FDA-Public Use
  Company Number: NO-JNJFOC-20080200875

PATIENT
  Sex: Male

DRUGS (5)
  1. REMICADE [Suspect]
     Indication: CROHN'S DISEASE
     Route: 042
  2. AZATHIOPRINE [Suspect]
     Dosage: VARIABLE AND LOWER DOSES
  3. AZATHIOPRINE [Suspect]
     Indication: CROHN'S DISEASE
  4. ADALIMUMAB [Suspect]
     Route: 058
  5. ADALIMUMAB [Suspect]
     Indication: CROHN'S DISEASE
     Route: 058

REACTIONS (6)
  - ANAEMIA [None]
  - DRUG INEFFECTIVE [None]
  - HEPATOSPLENIC T-CELL LYMPHOMA [None]
  - LEUKOPENIA [None]
  - SEPSIS [None]
  - THROMBOCYTOPENIA [None]
